FAERS Safety Report 4557798-1 (Version None)
Quarter: 2005Q1

REPORT INFORMATION
  Report Type: 
  Country: None (occurrence: None)
  Receive Date: 20050118
  Receipt Date: 20050104
  Transmission Date: 20050727
  Serious: Yes (Other)
  Sender: FDA-Public Use
  Company Number: HQWYE434107JAN05

PATIENT
  Sex: Male

DRUGS (1)
  1. EFFEXOR [Suspect]
     Indication: DEPRESSION
     Dosage: TRANSPLACENTAL
     Route: 064

REACTIONS (7)
  - DRUG EXPOSURE DURING PREGNANCY [None]
  - DRUG WITHDRAWAL SYNDROME NEONATAL [None]
  - FEEDING PROBLEM IN NEWBORN [None]
  - FEELING JITTERY [None]
  - HYPERTONIA [None]
  - IRRITABILITY [None]
  - RESTLESSNESS [None]
